FAERS Safety Report 5017534-1 (Version None)
Quarter: 2006Q2

REPORT INFORMATION
  Report Type: 
  Country: None (occurrence: None)
  Receive Date: 20060601
  Receipt Date: 20060601
  Transmission Date: 20061013
  Serious: Yes (Hospitalization)
  Sender: FDA-Public Use
  Company Number: None

PATIENT
  Age: 47 Year
  Sex: Male
  Weight: 97.5 kg

DRUGS (9)
  1. INTERFERON ALFACON-1 [Suspect]
  2. CLONAZEPAM [Concomitant]
  3. VENLAFAXINE XR [Concomitant]
  4. ATENOLOL [Concomitant]
  5. ASPIRIN [Concomitant]
  6. OMEPRAZOLE [Concomitant]
  7. NITROGLYCERIN [Concomitant]
  8. INFERGEN [Concomitant]
  9. RIBAVIRIN [Concomitant]

REACTIONS (1)
  - ANAEMIA [None]
